FAERS Safety Report 10257307 (Version 1)
Quarter: 2014Q2

REPORT INFORMATION
  Report Type: Spontaneous
  Country: US (occurrence: US)
  Receive Date: 20140625
  Receipt Date: 20140625
  Transmission Date: 20141212
  Serious: No
  Sender: FDA-Public Use
  Company Number: US-BAYER-2014-095073

PATIENT
  Age: 49 Year
  Sex: Female

DRUGS (7)
  1. BETASERON [Suspect]
     Dosage: 0.3 MG, QOD
     Route: 058
     Dates: start: 2003
  2. RELPAX [Concomitant]
     Dosage: 20 MG, UNK
  3. APAP [Concomitant]
     Dosage: 10 MG, UNK
  4. ADVIL [Concomitant]
     Dosage: 200 MG, UNK
  5. MAGNESIUM [Concomitant]
     Dosage: 250 MG, UNK
  6. OSCAL [Concomitant]
     Dosage: 500 MG, UNK
  7. VITAMIN D [Concomitant]
     Dosage: 1000 U, UNK

REACTIONS (3)
  - Injection site induration [Unknown]
  - Injection site inflammation [Unknown]
  - Feeling abnormal [Unknown]
